FAERS Safety Report 7390160-5 (Version None)
Quarter: 2011Q2

REPORT INFORMATION
  Report Type: 
  Country: None (occurrence: None)
  Receive Date: 20110401
  Receipt Date: 20110322
  Transmission Date: 20111010
  Serious: Yes (Death)
  Sender: FDA-Public Use
  Company Number: PHHY2011US10006

PATIENT
  Age: 21 Month
  Sex: Male

DRUGS (10)
  1. CYCLOSPORINE [Suspect]
     Indication: CORD BLOOD TRANSPLANT THERAPY
  2. DAUNORUBICIN HCL [Concomitant]
     Dosage: UNK
  3. BUSULFAN [Concomitant]
  4. CYCLOPHOSPHAMIDE [Concomitant]
  5. PREDNISONE [Concomitant]
  6. ETOPOSIDE [Concomitant]
     Dosage: UNK
  7. MYCOPHENOLATE MOFETIL [Concomitant]
     Indication: PROPHYLAXIS AGAINST GRAFT VERSUS HOST DISEASE
  8. TACROLIMUS [Concomitant]
     Indication: PROPHYLAXIS AGAINST GRAFT VERSUS HOST DISEASE
  9. LASIX [Concomitant]
  10. CYTARABINE [Concomitant]
     Dosage: UNK

REACTIONS (4)
  - ACUTE RESPIRATORY DISTRESS SYNDROME [None]
  - COUGH [None]
  - HYPOXIA [None]
  - MICROANGIOPATHY [None]
